FAERS Safety Report 18349755 (Version 1)
Quarter: 2020Q4

REPORT INFORMATION
  Report Type: Spontaneous
  Country: US (occurrence: US)
  Receive Date: 20201006
  Receipt Date: 20201006
  Transmission Date: 20210114
  Serious: No
  Sender: FDA-Public Use
  Company Number: US-TAKEDA-2020TUS041420

PATIENT
  Age: 75 Year
  Sex: Female

DRUGS (17)
  1. POTASSIUM [Concomitant]
     Active Substance: POTASSIUM
  2. REVLIMID [Concomitant]
     Active Substance: LENALIDOMIDE
  3. HCTZ [Concomitant]
     Active Substance: HYDROCHLOROTHIAZIDE
  4. VITAMIN B6 [Concomitant]
     Active Substance: PYRIDOXINE HYDROCHLORIDE
  5. DEXAMETHASONE. [Concomitant]
     Active Substance: DEXAMETHASONE
  6. NINLARO [Suspect]
     Active Substance: IXAZOMIB CITRATE
     Indication: PLASMA CELL MYELOMA
     Dosage: 3 MILLIGRAM, 1/WEEK
     Route: 048
     Dates: start: 20200917
  7. ASPIRIN                            /00002701/ [Concomitant]
     Active Substance: ASPIRIN
  8. CENTRUM SILVER                     /02363801/ [Concomitant]
     Active Substance: MINERALS\VITAMINS
  9. APAP [Concomitant]
     Active Substance: ACETAMINOPHEN
  10. TRAMADOL. [Concomitant]
     Active Substance: TRAMADOL
  11. AMLODIPINE [Concomitant]
     Active Substance: AMLODIPINE BESYLATE
  12. LOSARTAN. [Concomitant]
     Active Substance: LOSARTAN
  13. ONDANSETRON [Concomitant]
     Active Substance: ONDANSETRON
  14. ZOMETA [Concomitant]
     Active Substance: ZOLEDRONIC ACID
  15. FERROUS SULFATE. [Concomitant]
     Active Substance: FERROUS SULFATE
  16. MULTIVITAMIN                       /07504101/ [Concomitant]
     Active Substance: VITAMINS
  17. KYPROLIS [Concomitant]
     Active Substance: CARFILZOMIB

REACTIONS (1)
  - Diarrhoea [Unknown]

NARRATIVE: CASE EVENT DATE: 20200929
